FAERS Safety Report 4361146-X (Version None)
Quarter: 2004Q2

REPORT INFORMATION
  Report Type: 
  Country: None (occurrence: None)
  Receive Date: 20040511
  Receipt Date: 20031224
  Transmission Date: 20050107
  Serious: Yes (Life-Threatening, Hospitalization, Other)
  Sender: FDA-Public Use
  Company Number: USA031050949

PATIENT
  Age: 60 Year
  Sex: Female
  Weight: 55 kg

DRUGS (4)
  1. PROZAC [Suspect]
     Indication: MAJOR DEPRESSION
     Dosage: 3600 MG
  2. ZYPREXA [Concomitant]
  3. PREMPRO [Concomitant]
  4. XANAX [Concomitant]

REACTIONS (4)
  - DEPRESSION [None]
  - DRUG INEFFECTIVE [None]
  - GRAND MAL CONVULSION [None]
  - OVERDOSE [None]
